FAERS Safety Report 20852940 (Version 1)
Quarter: 2022Q2

REPORT INFORMATION
  Report Type: Spontaneous
  Country: US (occurrence: US)
  Receive Date: 20220520
  Receipt Date: 20220520
  Transmission Date: 20220721
  Serious: Yes (Other)
  Sender: FDA-Public Use
  Company Number: US-APOTEX-2022AP007858

PATIENT
  Age: 38 Year
  Sex: Female

DRUGS (12)
  1. GEMCITABINE [Suspect]
     Active Substance: GEMCITABINE
     Indication: Chemotherapy
     Dosage: UNK
     Route: 065
     Dates: start: 201608, end: 202004
  2. LETROZOLE [Suspect]
     Active Substance: LETROZOLE
     Indication: Chemotherapy
     Dosage: UNK
     Route: 065
     Dates: start: 201608, end: 202004
  3. FULVESTRANT [Suspect]
     Active Substance: FULVESTRANT
     Indication: Chemotherapy
     Dosage: UNK
     Route: 065
     Dates: start: 201608, end: 202004
  4. LUPRON [Suspect]
     Active Substance: LEUPROLIDE ACETATE
     Indication: Chemotherapy
     Dosage: UNK
     Route: 065
     Dates: start: 201608, end: 202004
  5. LAPATINIB [Suspect]
     Active Substance: LAPATINIB
     Indication: Chemotherapy
     Dosage: UNK
     Route: 065
     Dates: start: 201608, end: 202004
  6. PALBOCICLIB [Suspect]
     Active Substance: PALBOCICLIB
     Indication: Chemotherapy
     Dosage: UNK
     Route: 065
     Dates: start: 201608, end: 202004
  7. EVEROLIMUS [Suspect]
     Active Substance: EVEROLIMUS
     Indication: Chemotherapy
     Dosage: UNK
     Route: 065
     Dates: start: 201608, end: 202004
  8. ALPELISIB [Suspect]
     Active Substance: ALPELISIB
     Indication: Chemotherapy
     Dosage: UNK
     Route: 065
     Dates: start: 201608, end: 202004
  9. CAPECITABINE [Suspect]
     Active Substance: CAPECITABINE
     Indication: Chemotherapy
     Dosage: UNK
     Route: 065
     Dates: start: 201608, end: 202004
  10. SACITUZUMAB GOVITECAN-HZIY [Suspect]
     Active Substance: SACITUZUMAB GOVITECAN-HZIY
     Indication: Triple negative breast cancer
     Dosage: 10 MILLIGRAM/KILOGRAM, QD
     Route: 065
  11. SACITUZUMAB GOVITECAN-HZIY [Suspect]
     Active Substance: SACITUZUMAB GOVITECAN-HZIY
     Dosage: REDUCED BY 25%
     Route: 065
  12. EXEMESTANE [Suspect]
     Active Substance: EXEMESTANE

REACTIONS (1)
  - Neutropenia [Unknown]
